FAERS Safety Report 14150261 (Version 1)
Quarter: 2017Q4

REPORT INFORMATION
  Report Type: Spontaneous
  Country: US (occurrence: US)
  Receive Date: 20171101
  Receipt Date: 20171101
  Transmission Date: 20180321
  Serious: Yes (Other)
  Sender: FDA-Public Use
  Company Number: US-PFIZER INC-2017471243

PATIENT

DRUGS (3)
  1. MARCAINE [Suspect]
     Active Substance: BUPIVACAINE HYDROCHLORIDE
     Indication: ORTHOPAEDIC PROCEDURE
     Dosage: UNK
     Dates: start: 20161017
  2. DEPO-MEDROL [Suspect]
     Active Substance: METHYLPREDNISOLONE ACETATE
     Indication: ORTHOPAEDIC PROCEDURE
     Dosage: UNK
     Dates: start: 20161017
  3. LIDOCAINE HCL [Suspect]
     Active Substance: LIDOCAINE HYDROCHLORIDE
     Indication: ORTHOPAEDIC PROCEDURE
     Dosage: UNK
     Dates: start: 20161017

REACTIONS (11)
  - Injection site swelling [Unknown]
  - Injection site inflammation [Unknown]
  - Joint range of motion decreased [Unknown]
  - Product quality issue [Unknown]
  - Injection site pain [Unknown]
  - Pyrexia [Unknown]
  - Arthropathy [Unknown]
  - Staphylococcal infection [Unknown]
  - Suspected product contamination [Unknown]
  - Poor quality drug administered [Unknown]
  - Suspected transmission of an infectious agent via product [Unknown]

NARRATIVE: CASE EVENT DATE: 201610
